FAERS Safety Report 21684372 (Version 1)
Quarter: 2022Q4

REPORT INFORMATION
  Report Type: Report from Study
  Country: CL (occurrence: CL)
  Receive Date: 20221205
  Receipt Date: 20221205
  Transmission Date: 20230113
  Serious: Yes (Life-Threatening, Hospitalization, Other)
  Sender: FDA-Public Use
  Company Number: CL-ELI_LILLY_AND_COMPANY-CL202212000995

PATIENT
  Age: 63 Year
  Sex: Male
  Weight: 74 kg

DRUGS (30)
  1. PEMETREXED [Suspect]
     Active Substance: PEMETREXED
     Indication: Non-small cell lung cancer
     Dosage: 925 MG, UNKNOWN
     Route: 065
     Dates: start: 20211209, end: 20211209
  2. PEMETREXED [Suspect]
     Active Substance: PEMETREXED
     Dosage: 907.1 MG, UNKNOWN
     Route: 065
     Dates: start: 20220831, end: 20220831
  3. CARBOPLATIN [Concomitant]
     Active Substance: CARBOPLATIN
     Indication: Product used for unknown indication
     Dosage: 555 MG, UNKNOWN
     Route: 065
     Dates: start: 20211209, end: 20211209
  4. CARBOPLATIN [Concomitant]
     Active Substance: CARBOPLATIN
     Dosage: 506.5 MG, UNKNOWN
     Route: 065
     Dates: start: 20220322, end: 20220322
  5. TRAMADOL [Concomitant]
     Active Substance: TRAMADOL
     Indication: Product used for unknown indication
     Dosage: 37.5 MG, EVERY 6 HRS
     Route: 048
     Dates: start: 202108
  6. TRIMETHOPRIM [Concomitant]
     Active Substance: TRIMETHOPRIM
     Indication: Product used for unknown indication
     Dosage: 800 MG, TWICE PER WEEK
     Route: 048
     Dates: start: 20220103
  7. TRIMETHOPRIM [Concomitant]
     Active Substance: TRIMETHOPRIM
     Dosage: 800 MG, EVERY 24 HOURS
     Route: 048
     Dates: start: 20220704
  8. TRIMETHOPRIM [Concomitant]
     Active Substance: TRIMETHOPRIM
     Dosage: 800 MG, THREE TIMES PER WEEK
     Route: 048
     Dates: start: 20220712
  9. SULFAMETHOXAZOLE [Concomitant]
     Active Substance: SULFAMETHOXAZOLE
     Indication: Product used for unknown indication
     Dosage: 160 MG, TWICE PER WEEK
     Route: 048
     Dates: start: 20220103
  10. SULFAMETHOXAZOLE [Concomitant]
     Active Substance: SULFAMETHOXAZOLE
     Dosage: 160 MG, EVERY 24 HOURS
     Route: 048
     Dates: start: 20220704
  11. SULFAMETHOXAZOLE [Concomitant]
     Active Substance: SULFAMETHOXAZOLE
     Dosage: 160 MG, THREE TIMES PER WEEK
     Route: 048
     Dates: start: 20220712
  12. OMEPRAZOLE [Concomitant]
     Active Substance: OMEPRAZOLE
     Indication: Product used for unknown indication
     Dosage: 20 MG, EVERY 24 HOURS
     Route: 048
     Dates: start: 20220103
  13. CALCIUM [Concomitant]
     Active Substance: CALCIUM
     Indication: Product used for unknown indication
     Dosage: 1, EVERY 24 HOURS
     Route: 048
     Dates: start: 20220103
  14. CALCIUM [Concomitant]
     Active Substance: CALCIUM
     Dosage: 1, EVERY 24 HOURS
     Route: 048
     Dates: start: 20220704
  15. PREDNISONE [Concomitant]
     Active Substance: PREDNISONE
     Indication: Product used for unknown indication
     Dosage: 10 MG, EVERY 24 HOURS
     Route: 048
     Dates: start: 20220108
  16. PREDNISONE [Concomitant]
     Active Substance: PREDNISONE
     Dosage: 80 MG, DAILY
     Route: 048
     Dates: start: 20220704
  17. PREDNISONE [Concomitant]
     Active Substance: PREDNISONE
     Dosage: 20 MG, EVERY 24 HOURS
     Route: 048
     Dates: start: 20220728
  18. PREDNISONE [Concomitant]
     Active Substance: PREDNISONE
     Dosage: 10 MG, EVERY 24 HOURS
     Route: 048
     Dates: start: 20220802
  19. PREDNISONE [Concomitant]
     Active Substance: PREDNISONE
     Dosage: 10 MG, EVERY 24 HOURS
     Route: 048
     Dates: start: 20220916
  20. ACETAMINOPHEN [Concomitant]
     Active Substance: ACETAMINOPHEN
     Indication: Product used for unknown indication
     Dosage: 325 MG, EVERY 6 HRS
     Route: 048
     Dates: start: 202108
  21. ACETAMINOPHEN [Concomitant]
     Active Substance: ACETAMINOPHEN
     Dosage: 1 G, EVERY 8 HRS
     Route: 048
     Dates: start: 20220520
  22. MORPHINE [Concomitant]
     Active Substance: MORPHINE
     Indication: Product used for unknown indication
     Dosage: 0.3 UNK, EVERY 8 HRS
     Route: 048
     Dates: start: 20220520
  23. MORPHINE [Concomitant]
     Active Substance: MORPHINE
     Dosage: 0.3 UNK, EVERY 6 HRS
     Route: 048
     Dates: start: 20220613
  24. METAMIZOLE [Concomitant]
     Active Substance: METAMIZOLE
     Indication: Product used for unknown indication
     Dosage: 1 G, PRN
     Route: 048
     Dates: start: 202108
  25. PREGABALIN [Concomitant]
     Active Substance: PREGABALIN
     Indication: Product used for unknown indication
     Dosage: 75 MG, EVERY 24 HOURS
     Route: 048
     Dates: start: 202108
  26. PREGABALIN [Concomitant]
     Active Substance: PREGABALIN
     Dosage: 225 MG, DAILY
     Route: 048
     Dates: start: 20220520
  27. POLYETHYLENE GLYCOLS [Concomitant]
     Active Substance: POLYETHYLENE GLYCOLS
     Indication: Product used for unknown indication
     Dosage: 17 G, EVERY 24 HOURS
     Route: 048
     Dates: start: 20220613
  28. IPRATROPIUM BROMIDE [Concomitant]
     Active Substance: IPRATROPIUM BROMIDE
     Indication: Product used for unknown indication
     Dosage: 1, EVERY 6 HRS
     Route: 055
     Dates: start: 20220706
  29. HEPARIN [Concomitant]
     Active Substance: HEPARIN SODIUM
     Indication: Product used for unknown indication
     Dosage: UNK, UNKNOWN
     Route: 065
     Dates: start: 20220920
  30. ACENOCOUMAROL [Concomitant]
     Active Substance: ACENOCOUMAROL
     Indication: Product used for unknown indication
     Dosage: 4 MG, EVERY 24 HOURS
     Route: 048
     Dates: start: 20220922

REACTIONS (1)
  - Thrombocytopenia [Recovering/Resolving]

NARRATIVE: CASE EVENT DATE: 20221124
